FAERS Safety Report 8475680-4 (Version None)
Quarter: 2012Q2

REPORT INFORMATION
  Report Type: 
  Country: None (occurrence: None)
  Receive Date: 20120628
  Receipt Date: 20120620
  Transmission Date: 20120825
  Serious: Yes (Hospitalization)
  Sender: FDA-Public Use
  Company Number: US-GLAXOSMITHKLINE-A0882324A

PATIENT
  Age: 45 Year
  Sex: Female
  Weight: 118.2 kg

DRUGS (9)
  1. LOPRESSOR [Concomitant]
  2. MICARDIS HCT [Concomitant]
  3. CARDIZEM [Concomitant]
  4. PREMARIN [Concomitant]
  5. AVANDIA [Suspect]
     Indication: DIABETES MELLITUS
     Dosage: 4MG PER DAY
     Route: 048
  6. CELEBREX [Concomitant]
  7. SULAR [Concomitant]
  8. ZOCOR [Concomitant]
  9. ZESTRIL [Concomitant]

REACTIONS (5)
  - MYOCARDIAL INFARCTION [None]
  - CORONARY ARTERY OCCLUSION [None]
  - MUSCULOSKELETAL DISORDER [None]
  - GASTRIC DISORDER [None]
  - ARTHROPATHY [None]
